FAERS Safety Report 4638872-8 (Version None)
Quarter: 2005Q2

REPORT INFORMATION
  Report Type: 
  Country: None (occurrence: None)
  Receive Date: 20050418
  Receipt Date: 20050418
  Transmission Date: 20051028
  Serious: Yes (Other)
  Sender: FDA-Public Use
  Company Number: None

PATIENT
  Sex: Female
  Weight: 122.4712 kg

DRUGS (1)
  1. DEPO-PROVERA [Suspect]
     Indication: CONTRACEPTION
     Dosage: EVERY 3 MONTHS  INTRAMENIN
     Route: 029
     Dates: start: 20000105, end: 20030610

REACTIONS (2)
  - INFERTILITY [None]
  - POLYCYSTIC OVARIES [None]
